FAERS Safety Report 11840588 (Version 1)
Quarter: 2015Q4

REPORT INFORMATION
  Report Type: Spontaneous
  Country: BR (occurrence: BR)
  Receive Date: 20151216
  Receipt Date: 20151216
  Transmission Date: 20160305
  Serious: Yes (Hospitalization, Other)
  Sender: FDA-Public Use
  Company Number: BR-PFIZER INC-2015426586

PATIENT
  Age: 51 Year
  Sex: Male
  Weight: 91 kg

DRUGS (1)
  1. LYRICA [Suspect]
     Active Substance: PREGABALIN
     Indication: NEURALGIA
     Dosage: 150 MG (2 CAPSULES STRENGTH 75MG), 2X/DAY (IN THE MORNING AND AT NIGHT)
     Route: 048
     Dates: start: 2013

REACTIONS (5)
  - Drug ineffective [Unknown]
  - Intervertebral disc degeneration [Unknown]
  - Intervertebral disc protrusion [Unknown]
  - Nosocomial infection [Unknown]
  - Coma [Unknown]
